FAERS Safety Report 4324641-5 (Version None)
Quarter: 2004Q1

REPORT INFORMATION
  Report Type: 
  Country: None (occurrence: None)
  Receive Date: 20040322
  Receipt Date: 20040308
  Transmission Date: 20041129
  Serious: Yes (Death)
  Sender: FDA-Public Use
  Company Number: JRFBEL2000002419

PATIENT
  Age: 48 Year
  Sex: Female

DRUGS (4)
  1. ITRACONAZOLE [Suspect]
     Indication: CRYPTOCOCCOSIS
     Dosage: ORAL
     Route: 048
     Dates: start: 19970701, end: 19970801
  2. PREDNISOLONE [Concomitant]
  3. FLUCONAZOLE [Concomitant]
  4. AMPHOTERICIN B [Concomitant]

REACTIONS (4)
  - DEPRESSED LEVEL OF CONSCIOUSNESS [None]
  - HEPATIC ENZYME INCREASED [None]
  - MENINGITIS CRYPTOCOCCAL [None]
  - RESPIRATORY FAILURE [None]
